FAERS Safety Report 5822536-9 (Version None)
Quarter: 2008Q3

REPORT INFORMATION
  Report Type: 
  Country: None (occurrence: None)
  Receive Date: 20080725
  Receipt Date: 20080117
  Transmission Date: 20090109
  Serious: No
  Sender: FDA-Public Use
  Company Number: US-AMGEN-KDL261151

PATIENT
  Sex: Male

DRUGS (6)
  1. EPOGEN [Suspect]
     Indication: RENAL FAILURE CHRONIC
     Dates: start: 20060101
  2. ATENOLOL [Concomitant]
  3. AVANDIA [Concomitant]
  4. ACETAMINOPHEN [Concomitant]
  5. ULTRAM [Concomitant]
  6. PHOSLO [Concomitant]

REACTIONS (1)
  - THERAPEUTIC RESPONSE DECREASED [None]
